FAERS Safety Report 6412656-2 (Version None)
Quarter: 2009Q4

REPORT INFORMATION
  Report Type: 
  Country: None (occurrence: None)
  Receive Date: 20091023
  Receipt Date: 20091016
  Transmission Date: 20100525
  Serious: Yes (Life-Threatening)
  Sender: FDA-Public Use
  Company Number: PHHY2009BR36259

PATIENT
  Sex: Female

DRUGS (3)
  1. FORASEQ [Suspect]
     Indication: ASTHMA
     Dosage: 1 DF, QHS
     Dates: start: 20090811
  2. PROPRANOLOL [Concomitant]
     Dosage: 1 DF, BID
     Route: 048
  3. RIVOTRIL [Concomitant]
     Indication: SLEEP DISORDER
     Dosage: 1 DF, QHS
     Route: 048

REACTIONS (20)
  - ASTHMA [None]
  - BACK PAIN [None]
  - BONE PAIN [None]
  - COLD SWEAT [None]
  - COUGH [None]
  - DYSPNOEA [None]
  - EYE DISORDER [None]
  - FATIGUE [None]
  - FEELING ABNORMAL [None]
  - FEELING COLD [None]
  - GAIT DISTURBANCE [None]
  - HEADACHE [None]
  - INFLAMMATION [None]
  - MALAISE [None]
  - MYALGIA [None]
  - NECK PAIN [None]
  - ODYNOPHAGIA [None]
  - OROPHARYNGEAL PAIN [None]
  - PYREXIA [None]
  - SECRETION DISCHARGE [None]
